FAERS Safety Report 6743841-8 (Version None)
Quarter: 2010Q2

REPORT INFORMATION
  Report Type: 
  Country: None (occurrence: None)
  Receive Date: 20100527
  Receipt Date: 20100413
  Transmission Date: 20101027
  Serious: No
  Sender: FDA-Public Use
  Company Number: US-KINGPHARMUSA00001-K201000454

PATIENT
  Sex: Female

DRUGS (4)
  1. FLECTOR [Suspect]
     Indication: INTERVERTEBRAL DISC DEGENERATION
     Dosage: 1 PATCH, BID
     Route: 061
     Dates: start: 20100304, end: 20100308
  2. TRAMADOL HCL [Concomitant]
     Indication: INTERVERTEBRAL DISC DEGENERATION
     Dosage: UNK
     Dates: start: 20100101
  3. FLEXERIL [Concomitant]
     Indication: INTERVERTEBRAL DISC DEGENERATION
     Dosage: UNK
     Dates: start: 20100101
  4. MELOXICAM [Concomitant]
     Indication: INTERVERTEBRAL DISC DEGENERATION
     Dosage: UNK
     Dates: start: 20100101

REACTIONS (3)
  - COUGH [None]
  - HYPERSENSITIVITY [None]
  - LIP SWELLING [None]
